FAERS Safety Report 24693753 (Version 1)
Quarter: 2024Q4

REPORT INFORMATION
  Report Type: Spontaneous
  Country: CA (occurrence: CA)
  Receive Date: 20241204
  Receipt Date: 20241204
  Transmission Date: 20250115
  Serious: Yes (Other)
  Sender: CELLTRION
  Company Number: CA-CELLTRION INC.-2024CA030243

PATIENT

DRUGS (8)
  1. RITUXIMAB [Suspect]
     Active Substance: RITUXIMAB
     Indication: Rheumatoid arthritis
     Route: 042
  2. ALENDRONATE SODIUM [Concomitant]
     Active Substance: ALENDRONATE SODIUM
     Indication: Rheumatoid arthritis
  3. AMLODIPINE BESYLATE [Concomitant]
     Active Substance: AMLODIPINE BESYLATE
     Indication: Rheumatoid arthritis
  4. BISOPROLOL [Concomitant]
     Active Substance: BISOPROLOL
     Indication: Rheumatoid arthritis
  5. EZETIMIBE [Concomitant]
     Active Substance: EZETIMIBE
     Indication: Rheumatoid arthritis
  6. LEVODOPA [Concomitant]
     Active Substance: LEVODOPA
     Indication: Rheumatoid arthritis
  7. LIPITOR [Concomitant]
     Active Substance: ATORVASTATIN CALCIUM
     Indication: Rheumatoid arthritis
     Route: 065
  8. SULFASALAZINE [Concomitant]
     Active Substance: SULFASALAZINE
     Indication: Rheumatoid arthritis

REACTIONS (1)
  - Parkinson^s disease [Unknown]
